FAERS Safety Report 14131867 (Version 4)
Quarter: 2017Q4

REPORT INFORMATION
  Report Type: Spontaneous
  Country: US (occurrence: US)
  Receive Date: 20171026
  Receipt Date: 20171117
  Transmission Date: 20180321
  Serious: Yes (Hospitalization)
  Sender: FDA-Public Use
  Company Number: US-VERTEX PHARMACEUTICALS-2017-005867

PATIENT
  Age: 22 Year
  Sex: Male

DRUGS (28)
  1. PERTZYE [Concomitant]
     Active Substance: PANCRELIPASE AMYLASE\PANCRELIPASE LIPASE\PANCRELIPASE PROTEASE
     Dosage: UNK
     Route: 048
  2. INSULIN ASPART [Concomitant]
     Active Substance: INSULIN ASPART
     Dosage: 100 U/ML
     Route: 058
  3. VANCOMYCINE [Concomitant]
     Active Substance: VANCOMYCIN
     Indication: INFECTIVE PULMONARY EXACERBATION OF CYSTIC FIBROSIS
     Dosage: UNK
     Route: 042
     Dates: start: 201708
  4. AZTREONAM LYSINE [Suspect]
     Active Substance: AZTREONAM LYSINE
     Indication: PSEUDOMONAS INFECTION
     Dosage: 75 MG
     Route: 055
     Dates: start: 20110608, end: 20161011
  5. TOBI [Concomitant]
     Active Substance: TOBRAMYCIN
     Indication: INFECTIVE PULMONARY EXACERBATION OF CYSTIC FIBROSIS
     Dosage: UNK
     Route: 042
  6. LACTULOSE. [Concomitant]
     Active Substance: LACTULOSE
     Dosage: 30 MILLILITER, TID
     Route: 048
  7. LEVOFLOXACIN. [Concomitant]
     Active Substance: LEVOFLOXACIN
     Dosage: 1 DOSAGE FORM, QD FOR
     Route: 048
  8. ACETAMINOPHEN. [Concomitant]
     Active Substance: ACETAMINOPHEN
     Dosage: 325 MG,1 DOSAGE FORM, EVERY 4 HOURS, PRN
     Route: 048
  9. DORNASE ALFA. [Concomitant]
     Active Substance: DORNASE ALFA
     Dosage: 1 MG/ML, BID
     Route: 055
  10. VITAMIN D2 [Concomitant]
     Active Substance: ERGOCALCIFEROL
     Dosage: 50000 UT
     Route: 048
  11. LINEZOLID. [Concomitant]
     Active Substance: LINEZOLID
     Dosage: 600 MG,1 DOSAGE FORM, BID FOR 3 WEEKS
     Route: 048
  12. ZYRTEC [Concomitant]
     Active Substance: CETIRIZINE HYDROCHLORIDE
     Dosage: 10 MG, UNK
     Route: 048
  13. INSULIN [Concomitant]
     Active Substance: INSULIN NOS
  14. LANSOPRAZOLE. [Concomitant]
     Active Substance: LANSOPRAZOLE
     Dosage: 30 MG
     Route: 048
  15. URSODIOL. [Concomitant]
     Active Substance: URSODIOL
     Dosage: 300 MG
     Route: 048
  16. ALBUTEROL SULFATE. [Concomitant]
     Active Substance: ALBUTEROL SULFATE
     Indication: DYSPNOEA
     Dosage: 5 PUFFS, EVERY 4 HOURS, PRN
     Route: 048
  17. ULTRAM [Concomitant]
     Active Substance: TRAMADOL HYDROCHLORIDE
     Indication: PAIN
     Dosage: 4MG,1 DOSAGE FORM, EVERY 4 HOURS, PRN
     Route: 048
  18. ORKAMBI [Suspect]
     Active Substance: IVACAFTOR\LUMACAFTOR
     Indication: CYSTIC FIBROSIS
     Dosage: 2 DOSAGE FORM (200/125 MG EACH), BID
     Route: 048
     Dates: start: 20170712, end: 201710
  19. PROAIR HFA [Concomitant]
     Active Substance: ALBUTEROL SULFATE
     Dosage: UNK
     Route: 055
  20. CYPROHEPTADINE HCL [Concomitant]
     Active Substance: CYPROHEPTADINE HYDROCHLORIDE
     Dosage: 4 MG,1 DOSAGE FORM, TID
     Route: 048
  21. MINOCYCLINE [Concomitant]
     Active Substance: MINOCYCLINE\MINOCYCLINE HYDROCHLORIDE
     Dosage: 1 CAPSULE,100 MG, BID
     Route: 048
  22. STERILE WATER [Concomitant]
     Active Substance: WATER
     Dosage: 20 MILLILITER
  23. ORKAMBI [Suspect]
     Active Substance: IVACAFTOR\LUMACAFTOR
     Dosage: DOSE REDUCED TO 75%
     Route: 048
     Dates: start: 201710, end: 2017
  24. TOBRAMYCIN. [Concomitant]
     Active Substance: TOBRAMYCIN
     Dosage: 28 MG
     Route: 055
  25. SODIUM CHLORIDE. [Concomitant]
     Active Substance: SODIUM CHLORIDE
     Dosage: 4 MILLILITER
     Route: 055
  26. CAYSTON [Concomitant]
     Active Substance: AZTREONAM
     Dosage: 1 MILLILITER, VIAL
     Route: 055
  27. PULMOZYME [Concomitant]
     Active Substance: DORNASE ALFA
     Dosage: 2.5 MILLILITER, AMPUL
     Route: 055
  28. LISINOPRIL. [Concomitant]
     Active Substance: LISINOPRIL
     Dosage: 10 MG
     Route: 048

REACTIONS (3)
  - Hepatic enzyme increased [Not Recovered/Not Resolved]
  - Hyperglycaemia [Recovered/Resolved]
  - Infective pulmonary exacerbation of cystic fibrosis [Recovered/Resolved]

NARRATIVE: CASE EVENT DATE: 201708
